FAERS Safety Report 12420978 (Version 3)
Quarter: 2016Q4

REPORT INFORMATION
  Report Type: Report from Study
  Country: US (occurrence: US)
  Receive Date: 20160531
  Receipt Date: 20161111
  Transmission Date: 20170207
  Serious: Yes (Life-Threatening, Hospitalization)
  Sender: FDA-Public Use
  Company Number: US-SEATTLE GENETICS-2016SGN00833

PATIENT

DRUGS (25)
  1. DOXORUBICIN [Suspect]
     Active Substance: DOXORUBICIN
     Indication: DIFFUSE LARGE B-CELL LYMPHOMA
     Dosage: 108 MG, UNK
     Route: 042
     Dates: start: 20160519, end: 20160519
  2. ALPRAZOLAM. [Concomitant]
     Active Substance: ALPRAZOLAM
     Indication: ANXIETY
  3. PREDNISONE. [Concomitant]
     Active Substance: PREDNISONE
  4. DOXORUBICIN [Suspect]
     Active Substance: DOXORUBICIN
     Dosage: 110 MG, UNK
     Route: 042
     Dates: start: 20160428, end: 20160428
  5. IBUPROFEN. [Concomitant]
     Active Substance: IBUPROFEN
     Indication: PAIN
     Dosage: 600 MG, PRN
  6. TRAMADOL. [Concomitant]
     Active Substance: TRAMADOL
  7. CYCLOPHOSPHAMIDE. [Suspect]
     Active Substance: CYCLOPHOSPHAMIDE
     Dosage: 1643 UNK, UNK
     Route: 042
     Dates: start: 20160407, end: 20160407
  8. ALPRAZOLAM. [Concomitant]
     Active Substance: ALPRAZOLAM
     Indication: RESTLESS LEGS SYNDROME
  9. NEULASTA [Concomitant]
     Active Substance: PEGFILGRASTIM
     Dosage: UNK
     Dates: start: 20160519
  10. DOXORUBICIN [Suspect]
     Active Substance: DOXORUBICIN
     Dosage: 110 MG, UNK
     Route: 042
     Dates: start: 20160318, end: 20160318
  11. PROCHLORPERAZINE. [Concomitant]
     Active Substance: PROCHLORPERAZINE
  12. BRENTUXIMAB VEDOTIN [Suspect]
     Active Substance: BRENTUXIMAB VEDOTIN
     Indication: DIFFUSE LARGE B-CELL LYMPHOMA
     Dosage: 1.8 MG/KG, Q3WEEKS
     Route: 042
     Dates: start: 20160318, end: 20160519
  13. RITUXIMAB [Suspect]
     Active Substance: RITUXIMAB
     Indication: DIFFUSE LARGE B-CELL LYMPHOMA
     Dosage: 810 MG, UNK
     Route: 042
     Dates: start: 20160519, end: 20160519
  14. RITUXIMAB [Suspect]
     Active Substance: RITUXIMAB
     Dosage: 219 MG, UNK
     Route: 042
     Dates: start: 20160317, end: 20160317
  15. ONDANSETRON [Concomitant]
     Active Substance: ONDANSETRON
  16. CYCLOPHOSPHAMIDE. [Suspect]
     Active Substance: CYCLOPHOSPHAMIDE
     Dosage: 1643 UNK, UNK
     Route: 042
     Dates: start: 20160428, end: 20160428
  17. RITUXIMAB [Suspect]
     Active Substance: RITUXIMAB
     Dosage: 821 MG, UNK
     Route: 042
     Dates: start: 20160428, end: 20160428
  18. RITUXIMAB [Suspect]
     Active Substance: RITUXIMAB
     Dosage: 602 MG, UNK
     Route: 042
     Dates: start: 20160318, end: 20160318
  19. DOCUSATE SODIUM. [Concomitant]
     Active Substance: DOCUSATE SODIUM
  20. ALBUTEROL                          /00139501/ [Concomitant]
     Active Substance: ALBUTEROL
  21. LIDOCAINE. [Concomitant]
     Active Substance: LIDOCAINE
  22. CYCLOPHOSPHAMIDE. [Suspect]
     Active Substance: CYCLOPHOSPHAMIDE
     Indication: DIFFUSE LARGE B-CELL LYMPHOMA
     Dosage: 1620 MG, UNK
     Route: 042
     Dates: start: 20160519, end: 20160519
  23. CYCLOPHOSPHAMIDE. [Suspect]
     Active Substance: CYCLOPHOSPHAMIDE
     Dosage: 1643 UNK, UNK
     Route: 042
     Dates: start: 20160318, end: 20160318
  24. DOXORUBICIN [Suspect]
     Active Substance: DOXORUBICIN
     Dosage: 110 MG, UNK
     Route: 042
     Dates: start: 20160407, end: 20160407
  25. RITUXIMAB [Suspect]
     Active Substance: RITUXIMAB
     Dosage: 821 MG, UNK
     Route: 042
     Dates: start: 20160407, end: 20160407

REACTIONS (4)
  - Neutrophil count decreased [Recovering/Resolving]
  - White blood cell count decreased [Recovering/Resolving]
  - Febrile neutropenia [Recovered/Resolved]
  - Platelet count decreased [Not Recovered/Not Resolved]

NARRATIVE: CASE EVENT DATE: 20160527
